FAERS Safety Report 5873327-4 (Version None)
Quarter: 2008Q3

REPORT INFORMATION
  Report Type: 
  Country: None (occurrence: None)
  Receive Date: 20080908
  Receipt Date: 20080829
  Transmission Date: 20090109
  Serious: Yes (Other)
  Sender: FDA-Public Use
  Company Number: GB-ALLERGAN-0810959US

PATIENT
  Sex: Male

DRUGS (1)
  1. PREDNISOLONE ACETATE SUS [Suspect]
     Indication: IRIDOCYCLITIS
     Dosage: UNK, Q2HR
     Route: 047

REACTIONS (5)
  - ACANTHOSIS NIGRICANS [None]
  - CENTRAL OBESITY [None]
  - CHOROIDITIS [None]
  - CUSHINGOID [None]
  - GROWTH RETARDATION [None]
